FAERS Safety Report 11404391 (Version 1)
Quarter: 2015Q3

REPORT INFORMATION
  Report Type: Spontaneous
  Country: US (occurrence: None)
  Receive Date: 20150813
  Receipt Date: 20150813
  Transmission Date: 20151125
  Serious: Yes (Hospitalization)
  Sender: FDA-Public Use
  Company Number: 2015SE34049

PATIENT
  Age: 11 Month
  Sex: Female

DRUGS (8)
  1. SYNAGIS [Suspect]
     Active Substance: PALIVIZUMAB
     Indication: PREMATURE BABY
     Route: 030
     Dates: start: 20141113
  2. SYNAGIS [Suspect]
     Active Substance: PALIVIZUMAB
     Indication: PREMATURE BABY
     Dosage: 3RD DOSE
     Route: 030
     Dates: start: 20140116
  3. SYNAGIS [Suspect]
     Active Substance: PALIVIZUMAB
     Indication: SUPRAVENTRICULAR TACHYCARDIA
     Dosage: 2ND DOSE
     Route: 030
     Dates: start: 20141215
  4. SYNAGIS [Suspect]
     Active Substance: PALIVIZUMAB
     Indication: SUPRAVENTRICULAR TACHYCARDIA
     Route: 030
     Dates: start: 20141113
  5. SYNAGIS [Suspect]
     Active Substance: PALIVIZUMAB
     Indication: PREMATURE BABY
     Dosage: 2ND DOSE
     Route: 030
     Dates: start: 20141215
  6. SYNAGIS [Suspect]
     Active Substance: PALIVIZUMAB
     Indication: PREMATURE BABY
     Dosage: 3RD DOSE
     Route: 030
     Dates: start: 20150306
  7. SYNAGIS [Suspect]
     Active Substance: PALIVIZUMAB
     Indication: SUPRAVENTRICULAR TACHYCARDIA
     Dosage: 3RD DOSE
     Route: 030
     Dates: start: 20150306
  8. SYNAGIS [Suspect]
     Active Substance: PALIVIZUMAB
     Indication: SUPRAVENTRICULAR TACHYCARDIA
     Dosage: 3RD DOSE
     Route: 030
     Dates: start: 20140116

REACTIONS (1)
  - Respiratory syncytial virus bronchiolitis [None]

NARRATIVE: CASE EVENT DATE: 20150328
